APPROVED DRUG PRODUCT: CAROSPIR
Active Ingredient: SPIRONOLACTONE
Strength: 25MG/5ML
Dosage Form/Route: SUSPENSION;ORAL
Application: N209478 | Product #001 | TE Code: AB
Applicant: CMP DEVELOPMENT LLC
Approved: Aug 4, 2017 | RLD: Yes | RS: Yes | Type: RX

PATENTS:
Patent 9757394 | Expires: Oct 28, 2036
Patent 11395828 | Expires: Oct 28, 2036
Patent 11395828 | Expires: Oct 28, 2036
Patent 11395828 | Expires: Oct 28, 2036
Patent 10888570 | Expires: Oct 28, 2036
Patent 11389461 | Expires: Oct 28, 2036
Patent 10660907 | Expires: Oct 28, 2036
Patent 10624906 | Expires: Oct 28, 2036
Patent 10493083 | Expires: Oct 28, 2036
Patent 11491166 | Expires: Oct 28, 2036